FAERS Safety Report 4482579-7 (Version None)
Quarter: 2004Q4

REPORT INFORMATION
  Report Type: 
  Country: None (occurrence: None)
  Receive Date: 20041022
  Receipt Date: 20041015
  Transmission Date: 20050328
  Serious: Yes (Death, Hospitalization, Other)
  Sender: FDA-Public Use
  Company Number: JP-JNJFOC-20040800385

PATIENT
  Sex: Male

DRUGS (9)
  1. DUROTEP [Suspect]
     Route: 062
  2. DUROTEP [Suspect]
     Route: 062
  3. DUROTEP [Suspect]
     Route: 062
  4. DUROTEP [Suspect]
     Indication: CANCER PAIN
     Route: 062
  5. NAPROXEN [Concomitant]
     Indication: CANCER PAIN
     Route: 049
     Dates: start: 20040106, end: 20040807
  6. MOSAPRIDE CITRATE [Concomitant]
     Indication: CONSTIPATION
     Route: 049
  7. RABEPRAZOLE SODIUM [Concomitant]
     Indication: CANCER PAIN
     Route: 049
     Dates: start: 20040109, end: 20040807
  8. SENNOSIDE [Concomitant]
     Indication: CONSTIPATION
     Route: 049
     Dates: start: 20040109, end: 20040807
  9. BETAMETHASONE [Concomitant]
     Route: 049
     Dates: start: 20040302, end: 20040807

REACTIONS (6)
  - MALAISE [None]
  - MALIGNANT NEOPLASM PROGRESSION [None]
  - MUSCLE CONTRACTIONS INVOLUNTARY [None]
  - MYOCLONUS [None]
  - PNEUMONIA [None]
  - RENAL CELL CARCINOMA STAGE UNSPECIFIED [None]
